FAERS Safety Report 13562401 (Version 1)
Quarter: 2017Q2

REPORT INFORMATION
  Report Type: Report from Study
  Country: CN (occurrence: CN)
  Receive Date: 20170519
  Receipt Date: 20170519
  Transmission Date: 20170830
  Serious: Yes (Other)
  Sender: FDA-Public Use
  Company Number: CN-ROCHE-1933968

PATIENT

DRUGS (11)
  1. MYCOPHENOLATE MOFETIL. [Suspect]
     Active Substance: MYCOPHENOLATE MOFETIL
     Indication: PROPHYLAXIS AGAINST TRANSPLANT REJECTION
     Route: 065
  2. CYCLOSPORINE A [Suspect]
     Active Substance: CYCLOSPORINE
     Indication: PROPHYLAXIS AGAINST TRANSPLANT REJECTION
     Route: 065
  3. CYTOSINE ARABINOSIDE [Suspect]
     Active Substance: CYTARABINE
     Indication: PROPHYLAXIS AGAINST TRANSPLANT REJECTION
     Dosage: 4 G/M2, 10 D TO 9 D BEFORE TRANSPLANTATION ONCE DAILY
     Route: 042
  4. TACROLIMUS. [Suspect]
     Active Substance: TACROLIMUS
     Indication: PROPHYLAXIS AGAINST TRANSPLANT REJECTION
     Route: 065
  5. CYTOSINE ARABINOSIDE [Suspect]
     Active Substance: CYTARABINE
     Dosage: 2 G/M2, 9 D BEFORE TRANSPLANTATION ONE TIME
     Route: 042
  6. BUSULPHAN [Suspect]
     Active Substance: BUSULFAN
     Indication: PROPHYLAXIS AGAINST TRANSPLANT REJECTION
     Dosage: 8 D TO 6 D BEFORE TRANSPLANTATION IN 4 DIVIDED DOSES DAILY
     Route: 042
  7. CYCLOPHOSPHAMIDE. [Suspect]
     Active Substance: CYCLOPHOSPHAMIDE
     Indication: PROPHYLAXIS AGAINST TRANSPLANT REJECTION
     Dosage: 1.8 G/M2, 5 D TO 4 D BEFORE TRANSPLANTATION, INTRAVENOUS INFUSION, ONCE DAILY
     Route: 042
  8. METHOTREXATE. [Suspect]
     Active Substance: METHOTREXATE
     Indication: PROPHYLAXIS AGAINST TRANSPLANT REJECTION
     Route: 065
  9. SEMUSTINE [Suspect]
     Active Substance: SEMUSTINE
     Indication: PROPHYLAXIS AGAINST TRANSPLANT REJECTION
     Route: 048
  10. ANTI-THYMOCYTE GLOBULIN (RABBIT) NOS [Suspect]
     Active Substance: LAPINE T-LYMPHOCYTE IMMUNE GLOBULIN
     Indication: PROPHYLAXIS AGAINST TRANSPLANT REJECTION
     Dosage: 5 D TO 2 D BEFORE TRANSPLANTATION ONCE DAILY.
     Route: 042
  11. HYDROXYUREA. [Suspect]
     Active Substance: HYDROXYUREA
     Indication: PROPHYLAXIS AGAINST TRANSPLANT REJECTION
     Dosage: 10 D BEFORE TRANSPLANTATION  IN 2 DIVIDED DOSES;
     Route: 048

REACTIONS (11)
  - Leukoencephalopathy [Unknown]
  - Acute kidney injury [Unknown]
  - Cytomegalovirus infection [Unknown]
  - Obliterative bronchiolitis [Unknown]
  - Venoocclusive liver disease [Unknown]
  - Epstein-Barr virus infection [Unknown]
  - Cerebral artery occlusion [Unknown]
  - Chronic kidney disease [Unknown]
  - Cystitis haemorrhagic [Unknown]
  - Limbic encephalitis [Unknown]
  - Fungal infection [Unknown]
